FAERS Safety Report 8396167-3 (Version None)
Quarter: 2012Q2

REPORT INFORMATION
  Report Type: 
  Country: None (occurrence: None)
  Receive Date: 20120530
  Receipt Date: 20120524
  Transmission Date: 20120825
  Serious: Yes (Other)
  Sender: FDA-Public Use
  Company Number: BR-GLAXOSMITHKLINE-A0979339A

PATIENT
  Sex: Female
  Weight: 11 kg

DRUGS (1)
  1. ALBUTEROL [Suspect]
     Indication: PNEUMONIA
     Dosage: 2PUFF SINGLE DOSE
     Route: 055
     Dates: start: 20120523, end: 20120523

REACTIONS (2)
  - CONVULSION [None]
  - SYNCOPE [None]
